FAERS Safety Report 4616767-3 (Version None)
Quarter: 2005Q1

REPORT INFORMATION
  Report Type: 
  Country: None (occurrence: None)
  Receive Date: 20050321
  Receipt Date: 20050303
  Transmission Date: 20050727
  Serious: Yes (Death)
  Sender: FDA-Public Use
  Company Number: 10477

PATIENT
  Age: 7 Year
  Sex: Female

DRUGS (5)
  1. METHOTREXATE [Suspect]
     Indication: BURKITT'S LYMPHOMA
     Dosage: IT
  2. VINCRISTINE [Concomitant]
  3. CYCLOPHOSPHAMIDE [Concomitant]
  4. PREDNISONE [Concomitant]
  5. HYDROCORTISONE [Concomitant]

REACTIONS (4)
  - ANAEMIA [None]
  - CARDIAC FAILURE [None]
  - DRUG TOXICITY [None]
  - ESCHERICHIA BACTERAEMIA [None]
